FAERS Safety Report 9675958 (Version 1)
Quarter: 2013Q4

REPORT INFORMATION
  Report Type: Spontaneous
  Country: HU (occurrence: HU)
  Receive Date: 20131107
  Receipt Date: 20131107
  Transmission Date: 20140711
  Serious: Yes (Disabling)
  Sender: FDA-Public Use
  Company Number: HU-B.I. PHARMACEUTICALS,INC./RIDGEFIELD-2013-BI-35128HU

PATIENT
  Age: 74 Year
  Sex: Male
  Weight: 70 kg

DRUGS (10)
  1. PRADAXA [Suspect]
     Indication: ATRIAL FIBRILLATION
     Dosage: 220 MG
     Route: 048
     Dates: start: 20130731, end: 20131011
  2. PRADAXA [Suspect]
     Dosage: 300 MG
     Route: 048
  3. CLOPIDOGREL [Concomitant]
     Indication: ARTERIOSCLEROSIS
     Dosage: 75 MG
     Route: 048
  4. CARVEDILOL [Concomitant]
     Indication: ARTERIOSCLEROSIS
     Dosage: 50 MG
     Route: 048
  5. COVEREX AS KOMB [Concomitant]
     Indication: HYPERTONIA
     Dosage: DOSE OF ONE APPLICATION: 5/1,25 MG
     Route: 048
     Dates: end: 20131011
  6. KALDYUM [Concomitant]
     Indication: HYPERTONIA
     Route: 048
  7. TRIMETAZIDINE [Concomitant]
     Indication: HYPERTONIA
     Dosage: 17.5 MG
     Route: 048
  8. NOACID [Concomitant]
     Indication: GASTRIC DISORDER
     Dosage: 10 MG
     Route: 048
  9. DELIPID [Concomitant]
     Indication: HYPERCHOLESTEROLAEMIA
     Dosage: 20 MG
     Route: 048
  10. AMIODARON [Concomitant]
     Indication: ARRHYTHMIA
     Dosage: 200 MG
     Route: 048

REACTIONS (1)
  - Ischaemic stroke [Not Recovered/Not Resolved]
